FAERS Safety Report 9054726 (Version 1)
Quarter: 2013Q1

REPORT INFORMATION
  Report Type: Spontaneous
  Country: DE (occurrence: DE)
  Receive Date: 20130208
  Receipt Date: 20130208
  Transmission Date: 20140127
  Serious: Yes (Other)
  Sender: FDA-Public Use
  Company Number: PHHY2013DE011718

PATIENT
  Sex: Female

DRUGS (2)
  1. DIOVAN [Suspect]
     Dosage: 1 DF, (160 MG) QD
  2. HYDROCHLOROTHIAZIDE [Suspect]
     Dosage: 1 DF, (12.5 MG) QD

REACTIONS (3)
  - Primary hyperaldosteronism [Unknown]
  - Blood aldosterone increased [Unknown]
  - Renin decreased [Unknown]
